FAERS Safety Report 8043411-8 (Version None)
Quarter: 2012Q1

REPORT INFORMATION
  Report Type: 
  Country: None (occurrence: None)
  Receive Date: 20120112
  Receipt Date: 20120106
  Transmission Date: 20120608
  Serious: Yes (Hospitalization)
  Sender: FDA-Public Use
  Company Number: PHHY2012GB001317

PATIENT
  Age: 61 Year
  Sex: Female

DRUGS (19)
  1. AMINOPHYLLINE [Concomitant]
     Dosage: 225 MG, BID
  2. CALCIUM CARBONATE [Concomitant]
     Dosage: 1 DF, QD
  3. DIGOXIN [Concomitant]
     Dosage: 187.5 UG, QD
  4. BUMETANIDE [Concomitant]
     Dosage: 1 MG, QD
  5. HUMALOG [Concomitant]
     Dosage: 34 IU, QD
  6. LOSARTAN POTASSIUM [Concomitant]
     Dosage: 100 MG, QD
  7. OMEPRAZOLE [Concomitant]
     Dosage: 20 MG, QD
  8. SPIRIVA [Concomitant]
     Dosage: 18 IU, QD
  9. WARFARIN SODIUM [Concomitant]
  10. ALLOPURINOL [Suspect]
     Indication: GOUT
     Dosage: 100 MG, QD
     Route: 048
     Dates: start: 20111202, end: 20111229
  11. LEVOFLOXACIN [Suspect]
     Indication: PNEUMONIA
     Dosage: 500 MG, QD
     Route: 048
     Dates: start: 20111202, end: 20111204
  12. ACETAMINOPHEN [Concomitant]
     Dosage: 1 G, QID
  13. CODEINE SULFATE [Concomitant]
  14. LANTUS [Concomitant]
     Dosage: 57 IU, QD
  15. HUMALOG [Concomitant]
     Dosage: 28 IU, BID
  16. SYMBICORT [Concomitant]
     Dosage: 2 DF, BID
  17. PRAVASTATIN [Concomitant]
     Dosage: 40 MG, QD
  18. ALBUTEROL SULFATE AUTOHALER [Concomitant]
     Dosage: 2 DF, QID
  19. DILTIAZEM HCL [Concomitant]
     Dosage: 200 MG, BID

REACTIONS (1)
  - ACUTE GENERALISED EXANTHEMATOUS PUSTULOSIS [None]
